FAERS Safety Report 24726495 (Version 1)
Quarter: 2024Q4

REPORT INFORMATION
  Report Type: Spontaneous
  Country: US (occurrence: None)
  Receive Date: 20241211
  Receipt Date: 20241211
  Transmission Date: 20250114
  Serious: No
  Sender: Public
  Company Number: None

PATIENT
  Age: 60 Year
  Sex: Male

DRUGS (2)
  1. PIPERACILLIN SODIUM\TAZOBACTAM SODIUM [Suspect]
     Active Substance: PIPERACILLIN SODIUM\TAZOBACTAM SODIUM
     Indication: Diverticulitis
     Dates: start: 20230810, end: 20230810
  2. IOHEXOL [Suspect]
     Active Substance: IOHEXOL
     Dates: start: 20230810, end: 20230810

REACTIONS (2)
  - Contrast media reaction [None]
  - Anaphylactic shock [None]

NARRATIVE: CASE EVENT DATE: 20230810
